FAERS Safety Report 9492302 (Version 1)
Quarter: 2013Q3

REPORT INFORMATION
  Report Type: Spontaneous
  Country: FR (occurrence: FR)
  Receive Date: 20130830
  Receipt Date: 20130830
  Transmission Date: 20140515
  Serious: Yes (Other)
  Sender: FDA-Public Use
  Company Number: PHHY2013FR091559

PATIENT
  Age: 72 Year
  Sex: Male

DRUGS (2)
  1. ENOXAPARIN SODIUM [Suspect]
     Dosage: 100 IU
  2. DANAPAROID SODIUM [Interacting]
     Route: 042

REACTIONS (9)
  - Paralysis [Unknown]
  - Device occlusion [Unknown]
  - Peripheral ischaemia [Unknown]
  - Heparin-induced thrombocytopenia [Unknown]
  - Sensory loss [Unknown]
  - Aortic thrombosis [Unknown]
  - Arterial thrombosis [Unknown]
  - Drug interaction [Unknown]
  - Femoral pulse abnormal [Unknown]
